FAERS Safety Report 16957461 (Version 1)
Quarter: 2019Q4

REPORT INFORMATION
  Report Type: Spontaneous
  Country: US (occurrence: US)
  Receive Date: 20191024
  Receipt Date: 20191024
  Transmission Date: 20200122
  Serious: Yes (Other)
  Sender: FDA-Public Use
  Company Number: US-PFIZER INC-2019449782

PATIENT
  Age: 81 Year
  Sex: Female

DRUGS (1)
  1. DILANTIN [Suspect]
     Active Substance: PHENYTOIN
     Dosage: 100 MG, ALTERNATE DAY [ALTERNATE 2 CAPS AND 3 CAPS DAILY/2QOD (2 ONCE DAILY), 3QOD (3 ONCE DAILY)]

REACTIONS (1)
  - Cerebrovascular accident [Unknown]
